FAERS Safety Report 5732768-6 (Version None)
Quarter: 2008Q2

REPORT INFORMATION
  Report Type: 
  Country: None (occurrence: None)
  Receive Date: 20080507
  Receipt Date: 20080507
  Transmission Date: 20081010
  Serious: No
  Sender: FDA-Public Use
  Company Number: None

PATIENT
  Sex: Male
  Weight: 105.2345 kg

DRUGS (1)
  1. FENTANYL-100 [Suspect]
     Indication: BACK PAIN
     Dosage: 100MCG Q72HOURS ON SKIN

REACTIONS (1)
  - URTICARIA [None]
